FAERS Safety Report 5122228-8 (Version None)
Quarter: 2006Q4

REPORT INFORMATION
  Report Type: 
  Country: None (occurrence: None)
  Receive Date: 20061003
  Receipt Date: 20060907
  Transmission Date: 20070319
  Serious: Yes (Other)
  Sender: FDA-Public Use
  Company Number: 2006SP001428

PATIENT
  Age: 24 Year
  Sex: Female

DRUGS (2)
  1. PEG-INTRON [Suspect]
     Indication: HEPATITIS C
     Dosage: SC
     Route: 058
     Dates: start: 20060526
  2. RIBAVIRIN [Suspect]
     Indication: HEPATITIS C
     Dosage: PO
     Route: 048
     Dates: start: 20060526

REACTIONS (7)
  - DEHYDRATION [None]
  - HYPERSOMNIA [None]
  - HYPOTRICHOSIS [None]
  - OVERDOSE [None]
  - SLEEP WALKING [None]
  - VOMITING [None]
  - WHITE BLOOD CELL COUNT DECREASED [None]
